FAERS Safety Report 9474271 (Version 1)
Quarter: 2013Q3

REPORT INFORMATION
  Report Type: Report from Study
  Country: US (occurrence: US)
  Receive Date: 20130823
  Receipt Date: 20130823
  Transmission Date: 20140515
  Serious: Yes (Other)
  Sender: FDA-Public Use
  Company Number: US-ASTRAZENECA-2013SE63329

PATIENT
  Age: 58 Year
  Sex: Female

DRUGS (2)
  1. PROPOFOL [Suspect]
     Route: 042
  2. PROPOFOL [Suspect]
     Dosage: 30-40 MG, 2-4 TIMES BEFORE BED
     Route: 065

REACTIONS (2)
  - Drug dependence [Unknown]
  - Loss of consciousness [Unknown]
